FAERS Safety Report 4329371-1 (Version None)
Quarter: 2004Q1

REPORT INFORMATION
  Report Type: 
  Country: None (occurrence: None)
  Receive Date: 20040331
  Receipt Date: 20040331
  Transmission Date: 20041129
  Serious: Yes (Other)
  Sender: FDA-Public Use
  Company Number: None

PATIENT
  Age: 42 Year
  Sex: Male

DRUGS (3)
  1. BUPIVIRAINE 0.5 % ABBOTT [Suspect]
     Indication: PAIN
     Dosage: 2ML/HR WITH ML BOLUS Q '45 MIN
     Dates: start: 20031021, end: 20031029
  2. DEMEROL [Suspect]
     Dosage: OVER 8 DAYS 400 CC TOTAL
  3. VIOXX [Concomitant]

REACTIONS (2)
  - HEPATITIS [None]
  - MEDICAL DEVICE COMPLICATION [None]
